FAERS Safety Report 16789496 (Version 1)
Quarter: 2019Q3

REPORT INFORMATION
  Report Type: Spontaneous
  Country: US (occurrence: US)
  Receive Date: 20190718
  Receipt Date: 20190718
  Transmission Date: 20191005
  Serious: Yes (Hospitalization, Other)
  Sender: FDA-Public Use
  Company Number: None

PATIENT
  Age: 23 Year
  Sex: Male
  Weight: 53.07 kg

DRUGS (3)
  1. NO DRUG NAME [Concomitant]
  2. PHENOBARBITAL (PHENOBARBITAL) ORAL SOLUTION 20/5 [Suspect]
     Active Substance: PHENOBARBITAL
  3. PHENOBARBITAL ORAL SOLUTION, 20MG/ 5ML [Suspect]
     Active Substance: PHENOBARBITAL

REACTIONS (4)
  - Product contamination microbial [None]
  - Somnolence [None]
  - Product quality issue [None]
  - Recalled product administered [None]

NARRATIVE: CASE EVENT DATE: 20190624
